FAERS Safety Report 5203929-X (Version None)
Quarter: 2007Q1

REPORT INFORMATION
  Report Type: 
  Country: None (occurrence: None)
  Receive Date: 20070105
  Receipt Date: 20061222
  Transmission Date: 20070707
  Serious: Yes (Hospitalization)
  Sender: FDA-Public Use
  Company Number: 2006-02751

PATIENT
  Age: 69 Year
  Sex: Male

DRUGS (11)
  1. VELCADE [Suspect]
     Indication: MANTLE CELL LYMPHOMA
     Dosage: 1.30 M/G/M2
  2. RITUXIMAB (RITUXIMAB) SOLUTION (EXCEPT SYRUP) [Suspect]
     Indication: MANTLE CELL LYMPHOMA
     Dosage: SEE IMAGE
     Dates: start: 20061004
  3. RITUXIMAB (RITUXIMAB) SOLUTION (EXCEPT SYRUP) [Suspect]
     Indication: MANTLE CELL LYMPHOMA
     Dosage: SEE IMAGE
     Dates: start: 20061023
  4. VINCRISTINE [Suspect]
     Indication: MANTLE CELL LYMPHOMA
     Dosage: 1.40 MG/M2
     Dates: start: 20061004
  5. DOXORUBICIN HCL [Suspect]
     Indication: MANTLE CELL LYMPHOMA
     Dosage: 50.00 MG/M2
     Dates: start: 20061004
  6. CYCLOPHOSPHAMIDE [Suspect]
     Indication: MANTLE CELL LYMPHOMA
     Dosage: 750.00 MG/M2
     Dates: start: 20061004
  7. PREDNISONE TAB [Suspect]
     Indication: MANTLE CELL LYMPHOMA
     Dosage: 100.00 MG
     Dates: start: 20061004
  8. DIOVAN HCT [Concomitant]
  9. SINGULAIR [Concomitant]
  10. AMBIEN [Concomitant]
  11. COLCHICINE (COLCHICINE) [Concomitant]

REACTIONS (6)
  - CHILLS [None]
  - INFUSION RELATED REACTION [None]
  - NAUSEA [None]
  - PRURITUS [None]
  - PYREXIA [None]
  - URTICARIA [None]
